FAERS Safety Report 8194669-6 (Version None)
Quarter: 2012Q1

REPORT INFORMATION
  Report Type: 
  Country: None (occurrence: None)
  Receive Date: 20120308
  Receipt Date: 20120228
  Transmission Date: 20120608
  Serious: Yes (Other)
  Sender: FDA-Public Use
  Company Number: BR-ASTRAZENECA-2011SE63442

PATIENT
  Age: 59 Year
  Sex: Female
  Weight: 70 kg

DRUGS (6)
  1. CRESTOR [Suspect]
     Indication: HYPERCHOLESTEROLAEMIA
     Route: 048
     Dates: start: 20110401, end: 20110101
  2. UNKNOWN FOR HYPERTENSION [Suspect]
     Indication: HYPERTENSION
     Route: 048
     Dates: end: 20110601
  3. METFORMIN HYDROCHLORIDE [Concomitant]
     Indication: DIABETES MELLITUS
     Route: 048
  4. UNSPECIFIED FIBRATE [Suspect]
     Indication: HYPERCHOLESTEROLAEMIA
     Route: 048
  5. BROMAZEPAM [Concomitant]
     Indication: DEPRESSION
     Route: 048
     Dates: start: 20010101
  6. LOPIGREL [Concomitant]
     Route: 048
     Dates: start: 20100201

REACTIONS (7)
  - BLOOD PRESSURE INADEQUATELY CONTROLLED [None]
  - GASTRITIS [None]
  - BLOOD POTASSIUM INCREASED [None]
  - BLOOD TRIGLYCERIDES INCREASED [None]
  - THYROID NEOPLASM [None]
  - MUSCLE SPASMS [None]
  - RENAL PAIN [None]
